FAERS Safety Report 17061550 (Version 1)
Quarter: 2019Q4

REPORT INFORMATION
  Report Type: Spontaneous
  Country: IT (occurrence: IT)
  Receive Date: 20191121
  Receipt Date: 20191121
  Transmission Date: 20200122
  Serious: Yes (Other)
  Sender: FDA-Public Use
  Company Number: IT-MYLANLABS-2019M1111944

PATIENT
  Age: 63 Year
  Sex: Male

DRUGS (4)
  1. CALCIUM LEVOFOLINATE [Concomitant]
     Active Substance: LEVOLEUCOVORIN CALCIUM
     Dosage: UNK
  2. OXALIPLATIN. [Suspect]
     Active Substance: OXALIPLATIN
     Indication: RECTAL NEOPLASM
     Dosage: UNK
  3. FLUOROURACILE AHCL [Suspect]
     Active Substance: FLUOROURACIL
     Indication: RECTAL NEOPLASM
     Dosage: UNK
  4. ZARZIO [Concomitant]
     Active Substance: FILGRASTIM

REACTIONS (8)
  - Hypersensitivity [Unknown]
  - Insomnia [Unknown]
  - Phlebitis [Unknown]
  - Dry skin [Unknown]
  - Dysgeusia [Unknown]
  - Neutropenia [Unknown]
  - Asthenia [Unknown]
  - Nausea [Unknown]
